FAERS Safety Report 7728137-X (Version None)
Quarter: 2011Q3

REPORT INFORMATION
  Report Type: 
  Country: None (occurrence: None)
  Receive Date: 20110905
  Receipt Date: 20110822
  Transmission Date: 20111222
  Serious: Yes (Other)
  Sender: FDA-Public Use
  Company Number: US-ACTELION-A-CH2011-53276

PATIENT
  Age: 11 Year
  Sex: Male

DRUGS (1)
  1. TRACLEER [Suspect]
     Indication: PULMONARY ARTERIAL HYPERTENSION
     Dosage: UNK
     Route: 048

REACTIONS (11)
  - ANTINUCLEAR ANTIBODY POSITIVE [None]
  - BALLOON ATRIAL SEPTOSTOMY [None]
  - ANTI-SS-A ANTIBODY POSITIVE [None]
  - PARAINFLUENZAE VIRUS INFECTION [None]
  - THROMBOCYTOPENIA [None]
  - PULMONARY ARTERIAL HYPERTENSION [None]
  - IDIOPATHIC THROMBOCYTOPENIC PURPURA [None]
  - RIGHT VENTRICULAR FAILURE [None]
  - PRESYNCOPE [None]
  - COMPLEMENT FACTOR DECREASED [None]
  - PLATELET COUNT DECREASED [None]
